FAERS Safety Report 15027693 (Version 5)
Quarter: 2022Q3

REPORT INFORMATION
  Report Type: Spontaneous
  Country: US (occurrence: US)
  Receive Date: 20180619
  Receipt Date: 20220706
  Transmission Date: 20221027
  Serious: No
  Sender: FDA-Public Use
  Company Number: US-PFIZER INC-2018243389

PATIENT
  Age: 75 Year
  Sex: Male
  Weight: 100.7 kg

DRUGS (5)
  1. SOMAVERT [Suspect]
     Active Substance: PEGVISOMANT
     Indication: Acromegaly
     Dosage: 20 MG, DAILY (1 DAILY)
     Dates: start: 201705
  2. SOMAVERT [Suspect]
     Active Substance: PEGVISOMANT
     Indication: Pituitary enlargement
     Dosage: 20 MG, 2X/WEEK
     Dates: start: 202101
  3. SOMAVERT [Suspect]
     Active Substance: PEGVISOMANT
     Dosage: 20 MG, 1X/DAY (ONE 20MG INJECTION ONCE A DAY)
  4. SOMAVERT [Suspect]
     Active Substance: PEGVISOMANT
     Dosage: 20 MG (ABDOMEN AND LEGS)
  5. SOMAVERT [Suspect]
     Active Substance: PEGVISOMANT
     Dosage: 20 MG (ABDOMEN AND LEGS)

REACTIONS (4)
  - Intentional product misuse [Unknown]
  - Injection site bruising [Unknown]
  - Insulin-like growth factor increased [Unknown]
  - Blood test abnormal [Unknown]

NARRATIVE: CASE EVENT DATE: 20210101
